FAERS Safety Report 5300322-6 (Version None)
Quarter: 2007Q2

REPORT INFORMATION
  Report Type: 
  Country: None (occurrence: None)
  Receive Date: 20070418
  Receipt Date: 20070405
  Transmission Date: 20071010
  Serious: Yes (Other)
  Sender: FDA-Public Use
  Company Number: PHFR2007GB01279

PATIENT
  Age: 42 Year
  Sex: Female
  Weight: 56.5 kg

DRUGS (5)
  1. DEXAMETHASONE [Concomitant]
     Indication: LUNG NEOPLASM MALIGNANT
     Dosage: 8 DF, Q72H
     Route: 048
  2. DOCETAXEL [Concomitant]
     Indication: BREAST CANCER
     Dosage: 100 MG, QW3
     Route: 042
     Dates: start: 20060425
  3. GRANISETRON [Concomitant]
     Indication: BREAST CANCER
     Dosage: 1 MG, Q72H
     Route: 048
  4. HERCEPTIN [Concomitant]
     Indication: BONE NEOPLASM MALIGNANT
     Dosage: 2 MG/KG, QW
     Route: 042
     Dates: start: 20060425
  5. ZOLEDRONIC ACID [Suspect]
     Indication: PROPHYLACTIC CHEMOTHERAPY
     Dosage: 4MG/DAY
     Route: 042
     Dates: end: 20060704

REACTIONS (4)
  - IMPAIRED HEALING [None]
  - INFECTION [None]
  - OSTEONECROSIS [None]
  - TOOTH EXTRACTION [None]
